FAERS Safety Report 6386488-8 (Version None)
Quarter: 2009Q3

REPORT INFORMATION
  Report Type: 
  Country: None (occurrence: None)
  Receive Date: 20090930
  Receipt Date: 20090930
  Transmission Date: 20100115
  Serious: Yes (Other)
  Sender: FDA-Public Use
  Company Number: None

PATIENT
  Age: 60 Year
  Sex: Male

DRUGS (1)
  1. ALISKIREN [Suspect]
     Indication: HYPERTENSION
     Dosage: 150MG EVERY DAY PO
     Route: 048
     Dates: start: 20090618, end: 20090730

REACTIONS (1)
  - COUGH [None]
